FAERS Safety Report 6464179-2 (Version None)
Quarter: 2009Q4

REPORT INFORMATION
  Report Type: 
  Country: None (occurrence: None)
  Receive Date: 20091201
  Receipt Date: 20090828
  Transmission Date: 20100525
  Serious: Yes (Other)
  Sender: FDA-Public Use
  Company Number: PHHY2009GR36503

PATIENT
  Age: 47 Year
  Sex: Female

DRUGS (1)
  1. EXTAVIA [Suspect]

REACTIONS (5)
  - ACCOMMODATION DISORDER [None]
  - ASTHENIA [None]
  - BALANCE DISORDER [None]
  - NYSTAGMUS [None]
  - SPEECH DISORDER [None]
